FAERS Safety Report 17344530 (Version 1)
Quarter: 2020Q1

REPORT INFORMATION
  Report Type: Spontaneous
  Country: US (occurrence: US)
  Receive Date: 20200129
  Receipt Date: 20200129
  Transmission Date: 20200409
  Serious: No
  Sender: FDA-Public Use
  Company Number: US-ALLERGAN-1941439US

PATIENT
  Sex: Female

DRUGS (3)
  1. JUVEDERM [Concomitant]
     Active Substance: HYALURONIC ACID
     Dosage: UNK
     Dates: start: 20191004
  2. BOTOX COSMETIC [Suspect]
     Active Substance: ONABOTULINUMTOXINA
     Indication: SKIN WRINKLING
     Dosage: 2 UNITS, SINGLE
     Route: 065
     Dates: start: 20191004, end: 20191004
  3. BOTOX COSMETIC [Suspect]
     Active Substance: ONABOTULINUMTOXINA
     Indication: SKIN WRINKLING
     Dosage: 7 UNITS, SINGLE
     Route: 065
     Dates: start: 20191004, end: 20191004

REACTIONS (1)
  - Eyelid rash [Unknown]
